FAERS Safety Report 5175206-7 (Version None)
Quarter: 2006Q4

REPORT INFORMATION
  Report Type: 
  Country: None (occurrence: None)
  Receive Date: 20061206
  Receipt Date: 20061121
  Transmission Date: 20070319
  Serious: Yes (Other)
  Sender: FDA-Public Use
  Company Number: 2006BL006432

PATIENT
  Sex: Female

DRUGS (1)
  1. FRAKIDEX POMMADE OPHTALMIQUE (FRAMYCETIN/DEXAMETHASONE SODIUM PHOSPHAT [Suspect]
     Indication: HORDEOLUM
     Dosage: IN THE EVENING; OPHTHALMIC
     Route: 047
     Dates: start: 20060301, end: 20060301

REACTIONS (2)
  - BENIGN HYDATIDIFORM MOLE [None]
  - DRUG EXPOSURE DURING PREGNANCY [None]
